FAERS Safety Report 20668655 (Version 4)
Quarter: 2024Q1

REPORT INFORMATION
  Report Type: Other
  Country: CA (occurrence: None)
  Receive Date: 20220404
  Receipt Date: 20240108
  Transmission Date: 20240410
  Serious: No
  Sender: FDA-Public Use
  Company Number: CA-ROCHE-3065848

PATIENT
  Age: 62 Year
  Sex: Female

DRUGS (2)
  1. OCREVUS [Suspect]
     Active Substance: OCRELIZUMAB
     Indication: Primary progressive multiple sclerosis
     Dosage: 300 MG AT DAY 0 AND 14, THEN 600 MG EVERY 6 MONTH
     Route: 042
     Dates: start: 20190731
  2. BENZYDAMINE [Concomitant]
     Active Substance: BENZYDAMINE

REACTIONS (2)
  - COVID-19 [Not Recovered/Not Resolved]
  - Poor venous access [Unknown]

NARRATIVE: CASE EVENT DATE: 20220325
